FAERS Safety Report 16471387 (Version 2)
Quarter: 2019Q3

REPORT INFORMATION
  Report Type: Spontaneous
  Country: PL (occurrence: PL)
  Receive Date: 20190624
  Receipt Date: 20190709
  Transmission Date: 20191004
  Serious: Yes (Hospitalization, Other)
  Sender: FDA-Public Use
  Company Number: PL-SHIRE-PL201919611

PATIENT

DRUGS (16)
  1. HUMAN NORMAL IMMUNOGLOBULIN [Suspect]
     Active Substance: HUMAN IMMUNOGLOBULIN G
     Indication: THROMBOCYTOPENIA
  2. MYCOPHENOLATE MOFETIL. [Suspect]
     Active Substance: MYCOPHENOLATE MOFETIL
     Indication: AUTOIMMUNE HAEMOLYTIC ANAEMIA
     Route: 065
  3. SOLU-MEDROL [Suspect]
     Active Substance: METHYLPREDNISOLONE SODIUM SUCCINATE
     Indication: THROMBOCYTOPENIA
  4. ELTROMBOPAG [Suspect]
     Active Substance: ELTROMBOPAG
     Indication: AUTOIMMUNE HAEMOLYTIC ANAEMIA
     Dosage: 75 MILLIGRAM, 1X/DAY:QD
     Route: 065
  5. AZATHIOPRINE. [Suspect]
     Active Substance: AZATHIOPRINE
     Indication: AUTOIMMUNE HAEMOLYTIC ANAEMIA
     Route: 065
  6. NOVOSEVEN [Concomitant]
     Active Substance: COAGULATION FACTOR VIIA RECOMBINANT HUMAN
     Indication: PRODUCT USED FOR UNKNOWN INDICATION
  7. HUMAN NORMAL IMMUNOGLOBULIN [Suspect]
     Active Substance: HUMAN IMMUNOGLOBULIN G
     Indication: AUTOIMMUNE HAEMOLYTIC ANAEMIA
     Route: 042
  8. MYCOPHENOLATE MOFETIL. [Suspect]
     Active Substance: MYCOPHENOLATE MOFETIL
     Indication: THROMBOCYTOPENIA
  9. SOLU-MEDROL [Suspect]
     Active Substance: METHYLPREDNISOLONE SODIUM SUCCINATE
     Indication: AUTOIMMUNE HAEMOLYTIC ANAEMIA
     Route: 065
  10. DANAZOL. [Suspect]
     Active Substance: DANAZOL
     Indication: AUTOIMMUNE HAEMOLYTIC ANAEMIA
     Route: 065
  11. CICLOSPORIN [Suspect]
     Active Substance: CYCLOSPORINE
     Indication: PRODUCT USED FOR UNKNOWN INDICATION
     Route: 065
  12. DANAZOL. [Suspect]
     Active Substance: DANAZOL
     Indication: THROMBOCYTOPENIA
  13. ENCORTON [PREDNISONE] [Suspect]
     Active Substance: PREDNISONE
     Indication: PRODUCT USED FOR UNKNOWN INDICATION
     Route: 065
  14. AZATHIOPRINE. [Suspect]
     Active Substance: AZATHIOPRINE
     Indication: THROMBOCYTOPENIA
  15. ELTROMBOPAG [Suspect]
     Active Substance: ELTROMBOPAG
     Indication: THROMBOCYTOPENIA
     Dosage: 50 MILLIGRAM, 1X/DAY:QD
     Route: 065
     Dates: start: 201609
  16. DEXAMETHASONE. [Suspect]
     Active Substance: DEXAMETHASONE
     Indication: PRODUCT USED FOR UNKNOWN INDICATION
     Route: 065

REACTIONS (7)
  - Cushingoid [Unknown]
  - Dermatitis allergic [Unknown]
  - Thrombocytopenia [Unknown]
  - Platelet count abnormal [Unknown]
  - Seizure [Unknown]
  - Drug ineffective [Unknown]
  - Loss of consciousness [Unknown]

NARRATIVE: CASE EVENT DATE: 201206
